FAERS Safety Report 11544510 (Version 2)
Quarter: 2016Q3

REPORT INFORMATION
  Report Type: Spontaneous
  Country: US (occurrence: US)
  Receive Date: 20150924
  Receipt Date: 20160909
  Transmission Date: 20161109
  Serious: Yes (Other)
  Sender: FDA-Public Use
  Company Number: US-SUN PHARMACEUTICAL INDUSTRIES LTD-13SUNGE18P

PATIENT
  Age: 57 Year
  Sex: Female

DRUGS (1)
  1. GEMCITABINE [Suspect]
     Active Substance: GEMCITABINE\GEMCITABINE HYDROCHLORIDE
     Indication: CHEMOTHERAPY
     Dosage: 1,250 MG/M^2 ON DAYS 1 AND 8 OF A 21-DAY CYCLE AND THEN 17 NOV AND 24 NOV 2010
     Route: 065
     Dates: start: 20101027

REACTIONS (1)
  - Posterior reversible encephalopathy syndrome [Recovered/Resolved]
